FAERS Safety Report 8922150 (Version 1)
Quarter: 2012Q4

REPORT INFORMATION
  Report Type: Report from Study
  Country: US (occurrence: US)
  Receive Date: 20121123
  Receipt Date: 20121123
  Transmission Date: 20130627
  Serious: Yes (Death, Life-Threatening, Hospitalization, Other)
  Sender: FDA-Public Use
  Company Number: PHHY2012US041308

PATIENT
  Age: 75 Year
  Sex: Male
  Weight: 72.6 kg

DRUGS (10)
  1. ICL670A [Suspect]
     Indication: IRON OVERLOAD
     Dosage: 1000 mg, QD
     Dates: start: 20080708, end: 20120117
  2. ICL670A [Suspect]
     Dosage: UNK
     Dates: start: 20120124
  3. DECITABINE [Concomitant]
     Indication: MYELODYSPLASTIC SYNDROME
     Dosage: 40 mg,
     Dates: start: 20100110
  4. NORVASC [Concomitant]
     Indication: HYPERTENSION
     Dosage: 10 mg,
     Dates: start: 20100128
  5. RAZADYNE [Concomitant]
     Indication: DEMENTIA ALZHEIMER^S TYPE
     Dosage: 10 mg, UNK
     Dates: start: 2010
  6. LOTENSIN [Concomitant]
     Indication: HYPERTENSION
     Dosage: 10 mg,
     Dates: start: 2010
  7. FINASTERIDE [Concomitant]
     Indication: BENIGN PROSTATIC HYPERPLASIA
     Dosage: 5 mg,
     Dates: start: 2010
  8. GALANTAMINE [Concomitant]
     Indication: DEMENTIA ALZHEIMER^S TYPE
     Dosage: 8 mg, QD
     Route: 048
     Dates: start: 2011
  9. VALSARTAN [Concomitant]
     Indication: HYPERTENSION
     Dosage: 40 mg, QD
     Route: 048
     Dates: start: 2010
  10. FARIN//WARFARIN [Concomitant]
     Indication: DIVERTICULITIS
     Dosage: 4 mg, QD
     Dates: start: 20120119

REACTIONS (19)
  - Sepsis [Fatal]
  - Urinary tract infection [Unknown]
  - Abdominal pain [Unknown]
  - Chest pain [Unknown]
  - Dyspnoea [Unknown]
  - Cholelithiasis [Unknown]
  - Splenomegaly [Unknown]
  - Dehydration [Recovering/Resolving]
  - Staphylococcal bacteraemia [Unknown]
  - Pyrexia [Unknown]
  - Malaise [Unknown]
  - Myalgia [Unknown]
  - Asthenia [Unknown]
  - Palpitations [Unknown]
  - Dizziness [Unknown]
  - Febrile neutropenia [Recovering/Resolving]
  - Pulmonary embolism [Recovered/Resolved]
  - Anaemia [Unknown]
  - Neutropenia [Unknown]
